FAERS Safety Report 19477864 (Version 2)
Quarter: 2021Q3

REPORT INFORMATION
  Report Type: Spontaneous
  Country: CA (occurrence: CA)
  Receive Date: 20210630
  Receipt Date: 20210818
  Transmission Date: 20211014
  Serious: Yes (Other)
  Sender: FDA-Public Use
  Company Number: CA-PFIZER INC-2021771183

PATIENT
  Age: 55 Year
  Sex: Female

DRUGS (2)
  1. ESTRING [Suspect]
     Active Substance: ESTRADIOL
     Indication: SKIN EXFOLIATION
     Dosage: UNK
     Dates: start: 20210609, end: 20210617
  2. ESTRING [Suspect]
     Active Substance: ESTRADIOL
     Indication: SKIN ATROPHY

REACTIONS (8)
  - Rash [Unknown]
  - Muscle spasms [Unknown]
  - Discomfort [Unknown]
  - Postmenopausal haemorrhage [Unknown]
  - Abdominal distension [Unknown]
  - Headache [Unknown]
  - Drug ineffective [Unknown]
  - Sleep disorder [Unknown]

NARRATIVE: CASE EVENT DATE: 20210616
